FAERS Safety Report 19472557 (Version 1)
Quarter: 2021Q2

REPORT INFORMATION
  Report Type: Spontaneous
  Country: US (occurrence: US)
  Receive Date: 20210629
  Receipt Date: 20210629
  Transmission Date: 20210717
  Serious: No
  Sender: FDA-Public Use
  Company Number: US-PFIZER INC-2021376034

PATIENT
  Sex: Female

DRUGS (1)
  1. CELECOXIB. [Suspect]
     Active Substance: CELECOXIB
     Dosage: 200 MG, 1X/DAY
     Dates: start: 20210322

REACTIONS (4)
  - Dry skin [Unknown]
  - Headache [Unknown]
  - Alopecia [Unknown]
  - Arthralgia [Unknown]

NARRATIVE: CASE EVENT DATE: 20210322
